FAERS Safety Report 18830299 (Version 1)
Quarter: 2021Q1

REPORT INFORMATION
  Report Type: Spontaneous
  Country: US (occurrence: US)
  Receive Date: 20210201
  Receipt Date: 20210201
  Transmission Date: 20210419
  Serious: No
  Sender: FDA-Public Use
  Company Number: US-ABBVIE-20K-163-3650245-00

PATIENT
  Age: 59 Year
  Sex: Female
  Weight: 143.01 kg

DRUGS (1)
  1. HUMIRA [Suspect]
     Active Substance: ADALIMUMAB
     Indication: PSORIASIS
     Route: 058
     Dates: start: 2019

REACTIONS (12)
  - Injection site pain [Recovered/Resolved]
  - Bone pain [Not Recovered/Not Resolved]
  - Psoriasis [Not Recovered/Not Resolved]
  - Headache [Not Recovered/Not Resolved]
  - Visual impairment [Not Recovered/Not Resolved]
  - Drug hypersensitivity [Unknown]
  - Injection site pain [Unknown]
  - Liquid product physical issue [Unknown]
  - Product quality issue [Unknown]
  - Device issue [Unknown]
  - Incorrect dose administered [Unknown]
  - Migraine [Recovered/Resolved]

NARRATIVE: CASE EVENT DATE: 2019
